FAERS Safety Report 5294949-8 (Version None)
Quarter: 2007Q2

REPORT INFORMATION
  Report Type: 
  Country: None (occurrence: None)
  Receive Date: 20070412
  Receipt Date: 20060817
  Transmission Date: 20071010
  Serious: Yes (Other)
  Sender: FDA-Public Use
  Company Number: 200614314EU

PATIENT
  Age: 35 Year
  Sex: Female

DRUGS (1)
  1. NICORETTE [Suspect]
     Indication: SMOKING CESSATION THERAPY
     Dosage: 45GUM PER DAY
     Route: 002

REACTIONS (6)
  - DEPENDENCE [None]
  - EPISTAXIS [None]
  - GINGIVAL DISORDER [None]
  - MIGRAINE [None]
  - MOUTH ULCERATION [None]
  - OVERDOSE [None]
